FAERS Safety Report 20197878 (Version 2)
Quarter: 2021Q4

REPORT INFORMATION
  Report Type: Spontaneous
  Country: JP (occurrence: JP)
  Receive Date: 20211217
  Receipt Date: 20211227
  Transmission Date: 20220303
  Serious: Yes (Other)
  Sender: FDA-Public Use
  Company Number: JP-ORGANON-O2112JPN001660

PATIENT
  Age: 9 Year
  Sex: Male

DRUGS (3)
  1. MONTELUKAST SODIUM [Suspect]
     Active Substance: MONTELUKAST SODIUM
     Indication: Rhinitis allergic
     Dosage: 5 MG
     Route: 048
     Dates: start: 20190828, end: 20211030
  2. FEXOFENADINE HYDROCHLORIDE [Suspect]
     Active Substance: FEXOFENADINE HYDROCHLORIDE
     Indication: Pruritus
     Dosage: 60 MG
     Route: 048
     Dates: start: 20200411, end: 20200919
  3. CEPHARANTHINE [Concomitant]
     Active Substance: CEPHARANTHINE
     Dosage: UNK
     Route: 048
     Dates: start: 20181222, end: 20211206

REACTIONS (1)
  - Alopecia universalis [Not Recovered/Not Resolved]

NARRATIVE: CASE EVENT DATE: 20200601
